FAERS Safety Report 4357729-3 (Version None)
Quarter: 2004Q2

REPORT INFORMATION
  Report Type: 
  Country: None (occurrence: None)
  Receive Date: 20040513
  Receipt Date: 20040419
  Transmission Date: 20050107
  Serious: Yes (Life-Threatening, Hospitalization)
  Sender: FDA-Public Use
  Company Number: 2004006834

PATIENT
  Age: 44 Year
  Sex: Male
  Weight: 70 kg

DRUGS (1)
  1. QUILONUM RETARD [Suspect]
     Dosage: 450MG UNKNOWN
     Route: 048
     Dates: start: 20040417, end: 20040417

REACTIONS (4)
  - DRUG LEVEL INCREASED [None]
  - INTENTIONAL OVERDOSE [None]
  - SUICIDE ATTEMPT [None]
  - VOMITING [None]
